FAERS Safety Report 4625164-6 (Version None)
Quarter: 2005Q1

REPORT INFORMATION
  Report Type: 
  Country: None (occurrence: None)
  Receive Date: 20050325
  Receipt Date: 20050221
  Transmission Date: 20050727
  Serious: No
  Sender: FDA-Public Use
  Company Number: USA050189157

PATIENT
  Age: 83 Year
  Sex: Female
  Weight: 56 kg

DRUGS (4)
  1. FORTEO [Suspect]
     Indication: BLOOD CALCIUM DECREASED
     Dosage: 20 UG DAY
     Dates: start: 20050120
  2. NORVASC [Concomitant]
  3. PROPRANOLOL [Concomitant]
  4. PREDNISONE [Concomitant]

REACTIONS (16)
  - ANOREXIA [None]
  - ASTHENIA [None]
  - CHILLS [None]
  - CONSTIPATION [None]
  - COUGH [None]
  - DIZZINESS [None]
  - INJECTION SITE HAEMORRHAGE [None]
  - MALAISE [None]
  - NASAL CONGESTION [None]
  - NASOPHARYNGITIS [None]
  - NAUSEA [None]
  - PHARYNGOLARYNGEAL PAIN [None]
  - PYREXIA [None]
  - RHINORRHOEA [None]
  - VIRAL INFECTION [None]
  - WEIGHT DECREASED [None]
